FAERS Safety Report 7686083-4 (Version None)
Quarter: 2011Q3

REPORT INFORMATION
  Report Type: 
  Country: None (occurrence: None)
  Receive Date: 20110811
  Receipt Date: 20110801
  Transmission Date: 20111222
  Serious: Yes (Hospitalization, Other)
  Sender: FDA-Public Use
  Company Number: 2011P1008122

PATIENT
  Age: 33 Year
  Sex: Male

DRUGS (3)
  1. PYRIMETHAMINE TAB [Suspect]
     Indication: TAY-SACHS DISEASE
     Dosage: 25 MG; QD;  50 MG; QD;
  2. PYRIMETHAMINE TAB [Suspect]
     Indication: TAY-SACHS DISEASE
     Dosage: 25 MG; QD;  50 MG; QD;
  3. LEUCOVORIN CALCIUM [Concomitant]

REACTIONS (1)
  - STATUS EPILEPTICUS [None]
